FAERS Safety Report 5511312-2 (Version None)
Quarter: 2007Q4

REPORT INFORMATION
  Report Type: 
  Country: None (occurrence: None)
  Receive Date: 20071109
  Receipt Date: 20070816
  Transmission Date: 20080405
  Serious: No
  Sender: FDA-Public Use
  Company Number: A0671193A

PATIENT
  Age: 33 Year
  Sex: Female

DRUGS (2)
  1. ALTABAX [Suspect]
     Indication: IMPETIGO
     Route: 061
     Dates: start: 20070801, end: 20070801
  2. NO CONCURRENT MEDICATION [Concomitant]

REACTIONS (2)
  - BURNING SENSATION [None]
  - LACRIMATION INCREASED [None]
